FAERS Safety Report 9338183 (Version 2)
Quarter: 2013Q3

REPORT INFORMATION
  Report Type: Report from Study
  Country: US (occurrence: US)
  Receive Date: 20130610
  Receipt Date: 20130812
  Transmission Date: 20140515
  Serious: Yes (Hospitalization)
  Sender: FDA-Public Use
  Company Number: US-ROCHE-1233719

PATIENT
  Age: 52 Year
  Sex: Male

DRUGS (12)
  1. MYCOPHENOLATE MOFETIL [Suspect]
     Indication: RENAL TRANSPLANT
     Route: 065
     Dates: start: 20110919
  2. BELATACEPT [Suspect]
     Indication: RENAL TRANSPLANT
     Route: 042
     Dates: start: 20070417
  3. GABAPENTIN [Concomitant]
     Route: 065
     Dates: start: 20121023
  4. HYDROCHLOROTHIAZIDE [Concomitant]
     Route: 065
     Dates: start: 20120328
  5. INSULIN NPH [Concomitant]
  6. METOPROLOL TARTRATE [Concomitant]
     Route: 065
     Dates: start: 20130412
  7. PREDNISONE [Concomitant]
  8. CALCIUM CARBONATE [Concomitant]
     Route: 065
     Dates: start: 20130509
  9. PROMETHAZINE [Concomitant]
     Route: 065
     Dates: start: 20130509, end: 20130509
  10. VANCOMYCIN HCL [Concomitant]
     Route: 065
     Dates: start: 20130509, end: 20130510
  11. INSULIN REGULAR [Concomitant]
  12. APIXABAN [Concomitant]
     Route: 065
     Dates: start: 20130415

REACTIONS (1)
  - Streptococcal sepsis [Recovered/Resolved]
